FAERS Safety Report 20831448 (Version 1)
Quarter: 2022Q2

REPORT INFORMATION
  Report Type: Spontaneous
  Country: US (occurrence: US)
  Receive Date: 20220516
  Receipt Date: 20220516
  Transmission Date: 20220721
  Serious: No
  Sender: FDA-Public Use
  Company Number: US-BRISTOL-MYERS SQUIBB COMPANY-2022-023558

PATIENT
  Age: 86 Year
  Sex: Female
  Weight: 54.4 kg

DRUGS (6)
  1. REVLIMID [Suspect]
     Active Substance: LENALIDOMIDE
     Indication: Plasma cell myeloma
     Dosage: FREQ : DAILY FOR 28 DAYS ON A 28 DAY CYCLE
     Route: 048
     Dates: end: 20211210
  2. POMALYST [Suspect]
     Active Substance: POMALIDOMIDE
     Indication: Plasma cell myeloma
     Dosage: 21 DAYS IN A ROW AND THEN OFF OF IT FOR A WEEK.
  3. ELIQUIS [Concomitant]
     Active Substance: APIXABAN
  4. LYRICA [Concomitant]
     Active Substance: PREGABALIN
  5. TYLENOL [Concomitant]
     Active Substance: ACETAMINOPHEN
  6. VICODIN [Concomitant]
     Active Substance: ACETAMINOPHEN\HYDROCODONE BITARTRATE

REACTIONS (1)
  - Bone disorder [Unknown]

NARRATIVE: CASE EVENT DATE: 20211210
